FAERS Safety Report 11309818 (Version 1)
Quarter: 2015Q3

REPORT INFORMATION
  Report Type: Spontaneous
  Country: US (occurrence: US)
  Receive Date: 20150724
  Receipt Date: 20150724
  Transmission Date: 20151125
  Serious: Yes (Other)
  Sender: FDA-Public Use
  Company Number: US-LPDUSPRD-20150569

PATIENT
  Sex: Female

DRUGS (1)
  1. PROGESTERONE INJECTION USP [Suspect]
     Active Substance: PROGESTERONE
     Dosage: DOSE NOT PROVIDED
     Route: 065

REACTIONS (3)
  - Oestrogen receptor assay positive [None]
  - Progesterone receptor assay positive [None]
  - Neoplasm malignant [Unknown]
